FAERS Safety Report 9408208 (Version 1)
Quarter: 2013Q3

REPORT INFORMATION
  Report Type: Spontaneous
  Country: TR (occurrence: TR)
  Receive Date: 20130716
  Receipt Date: 20130716
  Transmission Date: 20140515
  Serious: Yes (Hospitalization)
  Sender: FDA-Public Use
  Company Number: FK201302518

PATIENT
  Age: 20 Year
  Sex: Male

DRUGS (2)
  1. DOXORUBICIN [Suspect]
     Indication: HEPATOCELLULAR CARCINOMA
  2. IOHEXOL [Suspect]
     Indication: HEPATOCELLULAR CARCINOMA

REACTIONS (2)
  - Cholecystitis acute [None]
  - Gallbladder necrosis [None]
